FAERS Safety Report 16056857 (Version 1)
Quarter: 2019Q2

REPORT INFORMATION
  Report Type: Spontaneous
  Country: US (occurrence: US)
  Receive Date: 20190311
  Receipt Date: 20190311
  Transmission Date: 20190711
  Serious: No
  Sender: FDA-Public Use
  Company Number: None

PATIENT
  Age: 45 Year
  Sex: Female
  Weight: 83.7 kg

DRUGS (2)
  1. MULTIHANCE [Concomitant]
     Active Substance: GADOBENATE DIMEGLUMINE
     Dates: start: 20190311, end: 20190311
  2. MULTIHANCE [Suspect]
     Active Substance: GADOBENATE DIMEGLUMINE
     Indication: POST PROCEDURAL INFECTION
     Route: 040
     Dates: start: 20190311, end: 20190311

REACTIONS (6)
  - Cough [None]
  - Chest discomfort [None]
  - Chest pain [None]
  - Dyspnoea [None]
  - Contrast media reaction [None]
  - Nausea [None]

NARRATIVE: CASE EVENT DATE: 20190311
